FAERS Safety Report 5923080-0 (Version None)
Quarter: 2008Q4

REPORT INFORMATION
  Report Type: 
  Country: None (occurrence: None)
  Receive Date: 20081018
  Receipt Date: 20081007
  Transmission Date: 20090506
  Serious: Yes (Other)
  Sender: FDA-Public Use
  Company Number: US-PFIZER INC-2008085289

PATIENT
  Sex: Female
  Weight: 240 kg

DRUGS (1)
  1. CHANTIX [Suspect]
     Indication: SMOKING CESSATION THERAPY
     Dates: start: 20080901, end: 20080101

REACTIONS (2)
  - DEPRESSED MOOD [None]
  - INTENTIONAL SELF-INJURY [None]
